FAERS Safety Report 15413720 (Version 1)
Quarter: 2018Q3

REPORT INFORMATION
  Report Type: Spontaneous
  Country: DE (occurrence: DE)
  Receive Date: 20180921
  Receipt Date: 20180921
  Transmission Date: 20181010
  Serious: Yes (Other)
  Sender: FDA-Public Use
  Company Number: DE-PROVELL PHARMACEUTICALS-2055199

PATIENT
  Sex: Female

DRUGS (12)
  1. EUTHYROX [Suspect]
     Active Substance: LEVOTHYROXINE SODIUM
  2. EUTHYROX [Suspect]
     Active Substance: LEVOTHYROXINE SODIUM
  3. EUTHYROX [Suspect]
     Active Substance: LEVOTHYROXINE SODIUM
  4. EUTHYROX [Suspect]
     Active Substance: LEVOTHYROXINE SODIUM
  5. EUTHYROX [Suspect]
     Active Substance: LEVOTHYROXINE SODIUM
  6. EUTHYROX [Suspect]
     Active Substance: LEVOTHYROXINE SODIUM
  7. EUTHYROX [Suspect]
     Active Substance: LEVOTHYROXINE SODIUM
  8. EUTHYROX [Suspect]
     Active Substance: LEVOTHYROXINE SODIUM
     Indication: THYROID DISORDER
  9. EUTHYROX [Suspect]
     Active Substance: LEVOTHYROXINE SODIUM
  10. HEPARIN [Suspect]
     Active Substance: HEPARIN SODIUM
  11. EUTHYROX [Suspect]
     Active Substance: LEVOTHYROXINE SODIUM
  12. EUTHYROX [Suspect]
     Active Substance: LEVOTHYROXINE SODIUM

REACTIONS (24)
  - Drug intolerance [None]
  - Confusional state [None]
  - Depression [None]
  - Restlessness [Not Recovered/Not Resolved]
  - Sleep disorder [Not Recovered/Not Resolved]
  - Overdose [None]
  - Post-traumatic neck syndrome [None]
  - Asthenia [None]
  - Panic attack [Recovering/Resolving]
  - Tremor [None]
  - Night sweats [Not Recovered/Not Resolved]
  - Nervousness [Recovering/Resolving]
  - Histamine intolerance [None]
  - Thyroid function test abnormal [None]
  - Anxiety [None]
  - Mucous membrane disorder [Recovering/Resolving]
  - Dry skin [None]
  - Heart rate increased [Recovering/Resolving]
  - Nervous system disorder [Recovering/Resolving]
  - Skin induration [None]
  - Adrenal disorder [None]
  - Cardiac discomfort [Recovering/Resolving]
  - Fall [None]
  - Heparin-induced thrombocytopenia [None]

NARRATIVE: CASE EVENT DATE: 201807
